FAERS Safety Report 7129573-5 (Version None)
Quarter: 2010Q4

REPORT INFORMATION
  Report Type: 
  Country: None (occurrence: None)
  Receive Date: 20101130
  Receipt Date: 20101123
  Transmission Date: 20110411
  Serious: Yes (Other)
  Sender: FDA-Public Use
  Company Number: US-PFIZER INC-2010156248

PATIENT
  Sex: Female
  Weight: 78.458 kg

DRUGS (12)
  1. XANAX [Suspect]
     Indication: PANIC ATTACK
     Dosage: 1 MG DAILY
     Route: 048
  2. VITAMIN D [Concomitant]
     Indication: VITAMIN D DECREASED
     Dosage: UNK
  3. TUMS [Concomitant]
     Dosage: 150 MG, 2X/DAY
     Route: 048
  4. TRIMIPRAMINE [Concomitant]
     Dosage: DAILY
  5. TOPAMAX [Concomitant]
     Indication: CONVULSION
     Dosage: 25 MG FOUR CAPSULE TWO TIMES A DAY
     Route: 048
  6. TOPAMAX [Concomitant]
     Indication: HEADACHE
  7. CLONIDINE [Concomitant]
     Indication: HYPERTENSION
     Dosage: 0.2 MG DAILY
  8. AVAPRO [Concomitant]
     Indication: HYPERTENSION
     Dosage: 300 MG, DAILY
     Route: 048
  9. TRIAMTERENE [Concomitant]
     Dosage: UNK
  10. FLUOXETINE [Concomitant]
     Indication: DEPRESSION
     Dosage: 20MG/5ML DAILY
  11. KETOROLAC [Concomitant]
     Indication: HEADACHE
     Dosage: 10 MG, UNK
  12. BUTALBITAL [Concomitant]
     Indication: HEADACHE
     Dosage: EVERY SIX HOURS

REACTIONS (2)
  - DROP ATTACKS [None]
  - HERPES ZOSTER [None]
